FAERS Safety Report 4934965-6 (Version None)
Quarter: 2006Q1

REPORT INFORMATION
  Report Type: 
  Country: None (occurrence: None)
  Receive Date: 20060127
  Receipt Date: 20051208
  Transmission Date: 20060701
  Serious: Yes (Other)
  Sender: FDA-Public Use
  Company Number: 2005166998

PATIENT
  Age: 42 Year
  Sex: Female
  Weight: 87.9978 kg

DRUGS (3)
  1. LYRICA [Suspect]
     Indication: TRIGEMINAL NEURALGIA
     Dosage: 400 MG (200 MG, 2 IN 1 D)
     Dates: start: 20051101
  2. ALL OTHER THERAPEUTIC PRODUCTS [Suspect]
     Indication: DECREASED APPETITE
     Dates: start: 20051201
  3. FLONASE [Concomitant]

REACTIONS (3)
  - DRUG INTERACTION [None]
  - FALL [None]
  - FEELING ABNORMAL [None]
